FAERS Safety Report 9344228 (Version 1)
Quarter: 2013Q2

REPORT INFORMATION
  Report Type: Spontaneous
  Country: US (occurrence: None)
  Receive Date: 20130610
  Receipt Date: 20130610
  Transmission Date: 20140414
  Serious: Yes (Hospitalization, Other)
  Sender: FDA-Public Use
  Company Number: 2013P1006715

PATIENT
  Age: 38 Year
  Sex: Male

DRUGS (1)
  1. FENTANYL [Suspect]
     Indication: SUBSTANCE USE
     Route: 055

REACTIONS (4)
  - Intentional drug misuse [None]
  - Confusional state [None]
  - Respiratory distress [None]
  - Pneumonitis [None]
